FAERS Safety Report 8074079-2 (Version None)
Quarter: 2011Q4

REPORT INFORMATION
  Report Type: 
  Country: None (occurrence: None)
  Receive Date: 20111221
  Receipt Date: 20110803
  Transmission Date: 20120403
  Serious: Yes (Hospitalization)
  Sender: FDA-Public Use
  Company Number: PHHY2010US07212

PATIENT
  Age: 8 Year
  Sex: Female
  Weight: 26.3 kg

DRUGS (7)
  1. LEVOTHYROXINE SODIUM [Concomitant]
  2. FOLIC ACID [Concomitant]
  3. EXJADE [Suspect]
     Indication: IRON OVERLOAD
     Dosage: 625 MG, ORAL, 500 MG, DAILY, ORAL
     Route: 048
  4. CARVEDILOL [Concomitant]
  5. OXYCODONE HCL [Concomitant]
  6. PERCOCET [Concomitant]
  7. MIRALAX [Concomitant]

REACTIONS (6)
  - ABDOMINAL PAIN [None]
  - PAIN [None]
  - CHEST PAIN [None]
  - SICKLE CELL ANAEMIA WITH CRISIS [None]
  - PAIN IN EXTREMITY [None]
  - NAUSEA [None]
